FAERS Safety Report 22281779 (Version 1)
Quarter: 2023Q2

REPORT INFORMATION
  Report Type: Spontaneous
  Country: CA (occurrence: CA)
  Receive Date: 20230504
  Receipt Date: 20230504
  Transmission Date: 20230721
  Serious: Yes (Other)
  Sender: FDA-Public Use
  Company Number: CA-ORGANON-O2305CAN000174

PATIENT
  Age: 83 Year
  Sex: Female

DRUGS (5)
  1. EZETIMIBE [Suspect]
     Active Substance: EZETIMIBE
     Indication: Blood cholesterol increased
     Dosage: 10 MILLIGRAM, QD (1 EVERY 1 DAYS)
     Route: 048
  2. ASPIRIN [Concomitant]
     Active Substance: ASPIRIN
     Dosage: UNK, DOSAGE FORM NOT SPECIFIED
     Route: 065
  3. PANTOPRAZOLE [Concomitant]
     Active Substance: PANTOPRAZOLE
     Dosage: UNK, DOSAGE FORM NOT SPECIFIED
     Route: 065
  4. PERINDOPRIL [Concomitant]
     Active Substance: PERINDOPRIL
     Dosage: UNK, DOSAGE FORM NOT SPECIFIED
     Route: 065
  5. ROSUVASTATIN [Concomitant]
     Active Substance: ROSUVASTATIN
     Dosage: UNK, DOSAGE FORM NOT SPECIFIED
     Route: 058

REACTIONS (4)
  - Feeling hot [Unknown]
  - Impaired quality of life [Unknown]
  - Pruritus [Unknown]
  - Urticaria [Unknown]
